FAERS Safety Report 4430153-0 (Version None)
Quarter: 2004Q3

REPORT INFORMATION
  Report Type: 
  Country: None (occurrence: None)
  Receive Date: 20040819
  Receipt Date: 20040819
  Transmission Date: 20050211
  Serious: Yes (Other)
  Sender: FDA-Public Use
  Company Number: None

PATIENT
  Age: 33 Year
  Sex: Male
  Weight: 105.2345 kg

DRUGS (2)
  1. PAXIL [Suspect]
     Indication: ANXIETY
     Dosage: EVERY DAY THEN AS NEEDED
     Dates: start: 20030101
  2. PAXIL [Suspect]
     Indication: DEPRESSION
     Dosage: EVERY DAY THEN AS NEEDED
     Dates: start: 20030101

REACTIONS (7)
  - ANXIETY [None]
  - BALANCE DISORDER [None]
  - CONFUSIONAL STATE [None]
  - DISTURBANCE IN ATTENTION [None]
  - DIZZINESS [None]
  - DYSPNOEA [None]
  - FATIGUE [None]
